FAERS Safety Report 18490971 (Version 1)
Quarter: 2020Q4

REPORT INFORMATION
  Report Type: Spontaneous
  Country: US (occurrence: US)
  Receive Date: 20201111
  Receipt Date: 20201111
  Transmission Date: 20210114
  Serious: Yes (Hospitalization)
  Sender: FDA-Public Use
  Company Number: None

PATIENT
  Sex: Male

DRUGS (3)
  1. CAPECITABINE. [Suspect]
     Active Substance: CAPECITABINE
     Indication: RECTAL CANCER
     Dosage: ?          OTHER FREQUENCY:EVERY 12 HOURS M-F;?
     Route: 048
     Dates: start: 20200928
  2. AMOXICILLIN CLAVULANATE, ONDANSETRON, CIPROFLOXACIN, LISINOPRIL [Concomitant]
  3. LOPERAMIDE [Concomitant]
     Active Substance: LOPERAMIDE

REACTIONS (2)
  - Neutrophil count decreased [None]
  - Febrile neutropenia [None]
